FAERS Safety Report 5826723 (Version 6)
Quarter: 2013Q1

REPORT INFORMATION
  Report Type: Spontaneous
  Country: GB (occurrence: GB)
  Receive Date: 20050628
  Receipt Date: 20130326
  Transmission Date: 20140127
  Serious: Yes (Life-Threatening, Congenital Anomaly, Other)
  Sender: FDA-Public Use
  Company Number: GB-RB-1742-2005

PATIENT
  Sex: Female
  Weight: 3968 kg

DRUGS (2)
  1. SUBUTEX [Suspect]
     Indication: DRUG DEPENDENCE
     Dosage: MOTHER^S DAILY DOSE REPORTED AS 6-8 MG
     Route: 064
     Dates: start: 2004, end: 20050128
  2. PARACETAMOL [Concomitant]
     Indication: PRODUCT USED FOR UNKNOWN INDICATION
     Dosage: UNKNOWN DOSAGE
     Route: 064

REACTIONS (4)
  - Foetal exposure during pregnancy [Recovered/Resolved]
  - Left ventricular hypertrophy [Recovered/Resolved]
  - Cyanosis neonatal [Unknown]
  - Atrial septal defect [Recovered/Resolved]
